FAERS Safety Report 23545191 (Version 10)
Quarter: 2024Q2

REPORT INFORMATION
  Report Type: Report from Study
  Country: JP (occurrence: JP)
  Receive Date: 20240220
  Receipt Date: 20240619
  Transmission Date: 20240716
  Serious: Yes (Other)
  Sender: FDA-Public Use
  Company Number: JP-JNJFOC-20240225974

PATIENT
  Age: 76 Year
  Sex: Male
  Weight: 59 kg

DRUGS (3)
  1. ERLEADA [Suspect]
     Active Substance: APALUTAMIDE
     Indication: Prostate cancer metastatic
     Route: 048
     Dates: start: 20240124, end: 20240206
  2. ERLEADA [Suspect]
     Active Substance: APALUTAMIDE
     Route: 048
     Dates: start: 20240210, end: 20240319
  3. ERLEADA [Suspect]
     Active Substance: APALUTAMIDE
     Route: 048
     Dates: start: 20240320

REACTIONS (27)
  - Muscle spasms [Not Recovered/Not Resolved]
  - Chest discomfort [Recovered/Resolved]
  - Depressed level of consciousness [Not Recovered/Not Resolved]
  - Rash [Recovered/Resolved]
  - Cardiac discomfort [Not Recovered/Not Resolved]
  - Peripheral coldness [Not Recovered/Not Resolved]
  - Fatigue [Not Recovered/Not Resolved]
  - Insomnia [Not Recovered/Not Resolved]
  - Mood swings [Recovering/Resolving]
  - Cough [Not Recovered/Not Resolved]
  - Muscular weakness [Not Recovered/Not Resolved]
  - Physical deconditioning [Not Recovered/Not Resolved]
  - Malaise [Not Recovered/Not Resolved]
  - Epistaxis [Recovering/Resolving]
  - Skin mass [Recovering/Resolving]
  - Traumatic haemorrhage [Recovering/Resolving]
  - Decreased appetite [Not Recovered/Not Resolved]
  - Laryngeal pain [Not Recovered/Not Resolved]
  - Dyspnoea [Not Recovered/Not Resolved]
  - Feeling abnormal [Not Recovered/Not Resolved]
  - Haemorrhage [Not Recovered/Not Resolved]
  - Epistaxis [Not Recovered/Not Resolved]
  - Ear discomfort [Not Recovered/Not Resolved]
  - Nausea [Not Recovered/Not Resolved]
  - Headache [Not Recovered/Not Resolved]
  - Palpitations [Not Recovered/Not Resolved]
  - Dizziness [Not Recovered/Not Resolved]

NARRATIVE: CASE EVENT DATE: 20240101
